FAERS Safety Report 6543609-1 (Version None)
Quarter: 2010Q1

REPORT INFORMATION
  Report Type: 
  Country: None (occurrence: None)
  Receive Date: 20100119
  Receipt Date: 20100119
  Transmission Date: 20100710
  Serious: No
  Sender: FDA-Public Use
  Company Number: None

PATIENT
  Sex: Female
  Weight: 93.441 kg

DRUGS (1)
  1. WELLBUTRIN XL [Suspect]
     Dosage: 300MG PO
     Route: 048

REACTIONS (1)
  - NO THERAPEUTIC RESPONSE [None]
